FAERS Safety Report 26125101 (Version 1)
Quarter: 2025Q4

REPORT INFORMATION
  Report Type: Spontaneous
  Country: EU (occurrence: EU)
  Receive Date: 20251205
  Receipt Date: 20251205
  Transmission Date: 20260118
  Serious: Yes (Hospitalization)
  Sender: TEVA
  Company Number: None

PATIENT
  Age: 25 Year
  Sex: Female
  Weight: 65 kg

DRUGS (2)
  1. QUETIAPINE [Suspect]
     Active Substance: QUETIAPINE
     Indication: Borderline personality disorder
     Dosage: 400 MG OF QUETIAPINE LP ONCE A DAY: QUETIAPINE (FUMARATE OF)
     Route: 048
     Dates: start: 2024, end: 20251001
  2. QUETIAPINE [Suspect]
     Active Substance: QUETIAPINE
     Indication: Borderline personality disorder
     Dosage: 200 MG OF QUETIAPINE LI TWICE A DAY: QUETIAPINE (FUMARATE OF)
     Route: 048
     Dates: start: 20251002

REACTIONS (2)
  - Suicidal ideation [Unknown]
  - Product availability issue [Not Recovered/Not Resolved]

NARRATIVE: CASE EVENT DATE: 20251010
